FAERS Safety Report 7460075-2 (Version None)
Quarter: 2011Q2

REPORT INFORMATION
  Report Type: 
  Country: None (occurrence: None)
  Receive Date: 20110505
  Receipt Date: 20110422
  Transmission Date: 20111010
  Serious: Yes (Other)
  Sender: FDA-Public Use
  Company Number: PHHY2010JP83762

PATIENT
  Age: 71 Year
  Sex: Male

DRUGS (10)
  1. CALCIUM POLYSTYRENE SULFONATE [Concomitant]
     Dosage: 75G
     Route: 048
  2. RASILEZ [Suspect]
     Indication: HYPERTENSION
     Dosage: 150 MG, QD
     Route: 048
     Dates: start: 20101105, end: 20101203
  3. NESPO [Suspect]
     Dosage: 120 UG, QD
     Route: 058
  4. ALLOPURINOL [Concomitant]
     Dosage: 100MG
     Route: 048
  5. CALBLOCK [Concomitant]
     Dosage: 16MG
     Route: 048
  6. KREMEZIN [Concomitant]
     Dosage: 4G
     Route: 048
  7. ADALAT CC [Concomitant]
     Dosage: 80MG
     Route: 048
  8. OMEPRAL [Concomitant]
     Dosage: 10MG
     Route: 048
  9. LIPITOR [Concomitant]
     Dosage: 10MG
     Route: 048
  10. NU-LOTAN [Concomitant]
     Dosage: 100 MG
     Route: 048
     Dates: end: 20110114

REACTIONS (5)
  - HYPERKALAEMIA [None]
  - BLOOD UREA INCREASED [None]
  - NEPHROSCLEROSIS [None]
  - FEELING COLD [None]
  - RENAL IMPAIRMENT [None]
